FAERS Safety Report 18416164 (Version 4)
Quarter: 2022Q4

REPORT INFORMATION
  Report Type: Spontaneous
  Country: BR (occurrence: BR)
  Receive Date: 20201022
  Receipt Date: 20221219
  Transmission Date: 20230113
  Serious: Yes (Other)
  Sender: FDA-Public Use
  Company Number: BR-GLAXOSMITHKLINE-BR2018GSK045681

PATIENT

DRUGS (7)
  1. BENLYSTA [Suspect]
     Active Substance: BELIMUMAB
     Indication: Systemic lupus erythematosus
     Dosage: 800 MG
     Dates: start: 20180112
  2. BENLYSTA [Suspect]
     Active Substance: BELIMUMAB
     Dosage: 720 MG
  3. BENLYSTA [Suspect]
     Active Substance: BELIMUMAB
     Dosage: 76 MG, Z (EVERY 28 OR 30 DAYS)
  4. AZATHIOPRINE [Concomitant]
     Active Substance: AZATHIOPRINE
     Indication: Systemic lupus erythematosus
     Dosage: 50 MG, QD
  5. COVID 19 VACCINE [Concomitant]
     Indication: Prophylaxis
     Dosage: UNK
     Dates: start: 20210201
  6. HYDROXYCHLOROQUINE [Concomitant]
     Active Substance: HYDROXYCHLOROQUINE
     Indication: Product used for unknown indication
     Dosage: UNK
  7. PREDNISONE [Concomitant]
     Active Substance: PREDNISONE
     Indication: Product used for unknown indication
     Dosage: UNK

REACTIONS (12)
  - Vein rupture [Unknown]
  - Hysterectomy [Unknown]
  - Fatigue [Unknown]
  - Arthralgia [Unknown]
  - Weight increased [Unknown]
  - Injection site pain [Unknown]
  - Injection site swelling [Unknown]
  - Coronavirus infection [Recovered/Resolved]
  - Therapy interrupted [Unknown]
  - Overdose [Recovered/Resolved]
  - Inappropriate schedule of product administration [Recovered/Resolved]
  - Accidental underdose [Unknown]

NARRATIVE: CASE EVENT DATE: 20190604
